FAERS Safety Report 6341380-X (Version None)
Quarter: 2009Q3

REPORT INFORMATION
  Report Type: 
  Country: None (occurrence: None)
  Receive Date: 20090904
  Receipt Date: 20090826
  Transmission Date: 20100115
  Serious: Yes (Hospitalization)
  Sender: FDA-Public Use
  Company Number: US-ELI_LILLY_AND_COMPANY-US200908005872

PATIENT
  Sex: Male

DRUGS (13)
  1. PEMETREXED [Suspect]
     Indication: NON-SMALL CELL LUNG CANCER
     Dosage: 281.25 MG/M2, OTHER
     Route: 042
     Dates: start: 20090708
  2. TARCEVA [Suspect]
     Indication: NON-SMALL CELL LUNG CANCER
     Dosage: 50 MG, DAILY (1/D)
     Route: 048
     Dates: start: 20090708
  3. LISINOPRIL [Concomitant]
  4. METOPROLOL [Concomitant]
  5. IMDUR [Concomitant]
  6. PLAVIX [Concomitant]
  7. PRAVASTATIN [Concomitant]
  8. ARICEPT [Concomitant]
  9. PREDNISONE [Concomitant]
  10. SPIRIVA [Concomitant]
  11. VITAMIN B-12 [Concomitant]
  12. FOLIC ACID [Concomitant]
  13. ASPIRIN [Concomitant]

REACTIONS (1)
  - INAPPROPRIATE ANTIDIURETIC HORMONE SECRETION [None]
